FAERS Safety Report 17576602 (Version 2)
Quarter: 2020Q2

REPORT INFORMATION
  Report Type: Other
  Country: US (occurrence: US)
  Receive Date: 20200324
  Receipt Date: 20200622
  Transmission Date: 20200713
  Serious: Yes (Hospitalization, Other)
  Sender: FDA-Public Use
  Company Number: US-ACORDA-ACO_163652_2020

PATIENT
  Sex: Female

DRUGS (7)
  1. AMANTADINE. [Concomitant]
     Active Substance: AMANTADINE HYDROCHLORIDE
     Indication: PRODUCT USED FOR UNKNOWN INDICATION
     Dosage: 100 MILLIGRAM, QD
     Route: 065
  2. INBRIJA [Suspect]
     Active Substance: LEVODOPA
     Indication: ON AND OFF PHENOMENON
  3. NOURIANZ [Concomitant]
     Active Substance: ISTRADEFYLLINE
     Indication: PRODUCT USED FOR UNKNOWN INDICATION
     Dosage: UNK, QD
     Route: 065
  4. RYTARY [Concomitant]
     Active Substance: CARBIDOPA\LEVODOPA
     Indication: PRODUCT USED FOR UNKNOWN INDICATION
     Dosage: UNK, BID
     Route: 065
  5. INBRIJA [Suspect]
     Active Substance: LEVODOPA
     Indication: PARKINSON^S DISEASE
     Dosage: 84 MILLIGRAM, PRN, UP TO 5 TIMES A DAY
     Dates: start: 20191015, end: 202003
  6. CARBIDOPA AND LEVODOPA [Concomitant]
     Active Substance: CARBIDOPA\LEVODOPA
     Indication: PRODUCT USED FOR UNKNOWN INDICATION
     Dosage: 25/100, 6 CAPSULES/DAY
     Route: 065
  7. PRAMIPEXOLE. [Concomitant]
     Active Substance: PRAMIPEXOLE
     Indication: PRODUCT USED FOR UNKNOWN INDICATION
     Dosage: UNK, TID
     Route: 065

REACTIONS (10)
  - Cough [Recovered/Resolved]
  - Inappropriate schedule of product administration [Unknown]
  - Cardiac failure congestive [Recovering/Resolving]
  - Atrial fibrillation [Recovering/Resolving]
  - Device use issue [Unknown]
  - Product packaging quantity issue [Recovered/Resolved]
  - Wrong technique in device usage process [Unknown]
  - Product cleaning inadequate [Unknown]
  - Drug ineffective [Unknown]
  - Incorrect dose administered by device [Unknown]
